FAERS Safety Report 6694155-6 (Version None)
Quarter: 2010Q2

REPORT INFORMATION
  Report Type: 
  Country: None (occurrence: None)
  Receive Date: 20100423
  Receipt Date: 20091211
  Transmission Date: 20101027
  Serious: No
  Sender: FDA-Public Use
  Company Number: A0835456A

PATIENT

DRUGS (2)
  1. FLOVENT [Suspect]
     Indication: ASTHMA
     Route: 055
  2. PULMICORT [Suspect]
     Indication: DRUG USE FOR UNKNOWN INDICATION
     Route: 065

REACTIONS (1)
  - RASH GENERALISED [None]
